FAERS Safety Report 26134261 (Version 2)
Quarter: 2025Q4

REPORT INFORMATION
  Report Type: Spontaneous
  Country: US (occurrence: US)
  Receive Date: 20251209
  Receipt Date: 20251219
  Transmission Date: 20260117
  Serious: No
  Sender: LUPIN
  Company Number: US-LUPIN PHARMACEUTICALS INC.-2025-10979

PATIENT
  Age: 47 Year

DRUGS (2)
  1. TOLVAPTAN [Suspect]
     Active Substance: TOLVAPTAN
     Indication: Congenital cystic kidney disease
     Dosage: UNK
     Route: 065
  2. TOLVAPTAN [Suspect]
     Active Substance: TOLVAPTAN
     Indication: Congenital cystic kidney disease
     Dosage: UNK
     Route: 065

REACTIONS (3)
  - Fatigue [Not Recovered/Not Resolved]
  - Irritability [Not Recovered/Not Resolved]
  - Muscle spasms [Not Recovered/Not Resolved]
